FAERS Safety Report 8065783-0 (Version None)
Quarter: 2011Q4

REPORT INFORMATION
  Report Type: 
  Country: None (occurrence: None)
  Receive Date: 20111221
  Receipt Date: 20110110
  Transmission Date: 20120403
  Serious: Yes (Death)
  Sender: FDA-Public Use
  Company Number: PHHY2010US88603

PATIENT
  Age: 70 Year
  Sex: Female
  Weight: 50 kg

DRUGS (7)
  1. PROCHLORPERAZINE MALEATE [Concomitant]
  2. LANTUS [Concomitant]
  3. LISINOPRIL [Concomitant]
  4. SIMVASTATIN [Concomitant]
  5. EXJADE [Suspect]
     Indication: MYELOID LEUKAEMIA
     Dosage: 1000 MG, DAILY, ORAL
     Route: 048
     Dates: start: 20101011
  6. ASPIRIN [Concomitant]
  7. NOVOLIN R [Concomitant]

REACTIONS (1)
  - NEOPLASM MALIGNANT [None]
